FAERS Safety Report 13326434 (Version 2)
Quarter: 2017Q2

REPORT INFORMATION
  Report Type: Spontaneous
  Country: US (occurrence: US)
  Receive Date: 20170311
  Receipt Date: 20170403
  Transmission Date: 20170830
  Serious: Yes (Other)
  Sender: FDA-Public Use
  Company Number: PHEH2017US007189

PATIENT
  Sex: Female
  Weight: 108.8 kg

DRUGS (1)
  1. COSENTYX [Suspect]
     Active Substance: SECUKINUMAB
     Indication: RHEUMATOID ARTHRITIS
     Dosage: 150 MG, QMO
     Route: 065
     Dates: start: 20160823

REACTIONS (3)
  - Drug ineffective for unapproved indication [Unknown]
  - Postmenopausal haemorrhage [Unknown]
  - Product use in unapproved indication [Unknown]
